FAERS Safety Report 5927363-X (Version None)
Quarter: 2008Q4

REPORT INFORMATION
  Report Type: 
  Country: None (occurrence: None)
  Receive Date: 20081020
  Receipt Date: 20081008
  Transmission Date: 20090506
  Serious: Yes (Hospitalization, Other)
  Sender: FDA-Public Use
  Company Number: 239020J08USA

PATIENT
  Age: 47 Year
  Sex: Female
  Weight: 95 kg

DRUGS (2)
  1. REBIF [Suspect]
     Indication: MULTIPLE SCLEROSIS
     Dosage: 44 MCG, 3 IN 1 WEEKS, SUBCUTANEOUS
     Route: 058
     Dates: start: 20061211
  2. ADVIL [Concomitant]

REACTIONS (6)
  - ARTHRITIS INFECTIVE [None]
  - CARTILAGE INJURY [None]
  - FALL [None]
  - INFLAMMATION [None]
  - MENISCUS LESION [None]
  - WALKING AID USER [None]
